FAERS Safety Report 17456051 (Version 2)
Quarter: 2020Q2

REPORT INFORMATION
  Report Type: Spontaneous
  Country: CH (occurrence: CH)
  Receive Date: 20200225
  Receipt Date: 20200407
  Transmission Date: 20200713
  Serious: Yes (Congenital Anomaly)
  Sender: FDA-Public Use
  Company Number: NVSC2020CH043417

PATIENT
  Sex: Female

DRUGS (2)
  1. TEGRETOL [Suspect]
     Active Substance: CARBAMAZEPINE
     Indication: EPILEPSY
     Dosage: UNK UKN
     Route: 065
  2. DEPAKINE [Suspect]
     Active Substance: VALPROATE SODIUM
     Indication: EPILEPSY
     Dosage: UNK UKN
     Route: 065

REACTIONS (4)
  - Foetal exposure during pregnancy [Unknown]
  - Ileus [Recovered/Resolved with Sequelae]
  - Cleft palate [Recovered/Resolved with Sequelae]
  - Attention deficit hyperactivity disorder [Recovered/Resolved with Sequelae]

NARRATIVE: CASE EVENT DATE: 2004
